FAERS Safety Report 16593785 (Version 1)
Quarter: 2019Q3

REPORT INFORMATION
  Report Type: Spontaneous
  Country: SE (occurrence: SE)
  Receive Date: 20190718
  Receipt Date: 20190718
  Transmission Date: 20191004
  Serious: Yes (Disabling)
  Sender: FDA-Public Use
  Company Number: SE-MYLANLABS-2019M1067192

PATIENT
  Age: 75 Year
  Sex: Female

DRUGS (2)
  1. ATORVASTATIN [Suspect]
     Active Substance: ATORVASTATIN
     Indication: BLOOD CHOLESTEROL INCREASED
     Dosage: 40 MILLIGRAM, QD
     Dates: start: 20181005, end: 20181215
  2. GALANTAMINE. [Concomitant]
     Active Substance: GALANTAMINE
     Dosage: 24 MILLIGRAM
     Dates: start: 20161102

REACTIONS (3)
  - Amnesia [Recovered/Resolved with Sequelae]
  - Chest pain [Recovered/Resolved with Sequelae]
  - Hallucination [Recovered/Resolved with Sequelae]

NARRATIVE: CASE EVENT DATE: 20181215
